FAERS Safety Report 13643185 (Version 1)
Quarter: 2017Q2

REPORT INFORMATION
  Report Type: Report from Study
  Country: US (occurrence: US)
  Receive Date: 20170612
  Receipt Date: 20170612
  Transmission Date: 20170830
  Serious: Yes (Other)
  Sender: FDA-Public Use
  Company Number: US-EISAI MEDICAL RESEARCH-EC-2016-019857

PATIENT
  Sex: Male
  Weight: 81.8 kg

DRUGS (4)
  1. CANK-OXIDE [Concomitant]
  2. LENVIMA [Suspect]
     Active Substance: LENVATINIB
     Route: 048
     Dates: start: 20160607
  3. LENVIMA [Suspect]
     Active Substance: LENVATINIB
     Indication: THYROID CANCER
     Route: 048
     Dates: start: 201606, end: 20160606
  4. ZOFRAN [Concomitant]
     Active Substance: ONDANSETRON HYDROCHLORIDE

REACTIONS (10)
  - Pain [Not Recovered/Not Resolved]
  - Impaired healing [Unknown]
  - Migraine [Unknown]
  - Hypertension [Not Recovered/Not Resolved]
  - Aphasia [Unknown]
  - Aphthous ulcer [Unknown]
  - Nausea [Unknown]
  - Electrocardiogram QT prolonged [Unknown]
  - Influenza like illness [Not Recovered/Not Resolved]
  - Weight decreased [Unknown]

NARRATIVE: CASE EVENT DATE: 2016
